FAERS Safety Report 6442918-4 (Version None)
Quarter: 2009Q4

REPORT INFORMATION
  Report Type: 
  Country: None (occurrence: None)
  Receive Date: 20091117
  Receipt Date: 20091109
  Transmission Date: 20100525
  Serious: Yes (Other)
  Sender: FDA-Public Use
  Company Number: AT-SANOFI-AVENTIS-2009SA000663

PATIENT
  Age: 65 Year
  Sex: Female

DRUGS (3)
  1. ARAVA [Suspect]
     Indication: RHEUMATOID ARTHRITIS
     Route: 048
     Dates: start: 20090201
  2. ANTIASTHMATIC NOS [Concomitant]
     Indication: ASTHMA
  3. OPHTHALMOLOGICALS [Concomitant]
     Indication: SICCA SYNDROME
     Route: 047

REACTIONS (2)
  - OPTIC ATROPHY [None]
  - VISUAL IMPAIRMENT [None]
